FAERS Safety Report 5046475-9 (Version None)
Quarter: 2006Q3

REPORT INFORMATION
  Report Type: 
  Country: None (occurrence: None)
  Receive Date: 20060710
  Receipt Date: 19930122
  Transmission Date: 20061208
  Serious: Yes (Life-Threatening, Hospitalization)
  Sender: FDA-Public Use
  Company Number: CA-ROCHE-930803014001

PATIENT
  Age: 20 Year
  Sex: Female

DRUGS (2)
  1. ACCUTANE [Suspect]
     Indication: ACNE
     Route: 048
     Dates: start: 19920903, end: 19921203
  2. ORAL CONTRACEPTIVE NOS [Concomitant]
     Route: 048

REACTIONS (1)
  - PULMONARY EMBOLISM [None]
